FAERS Safety Report 8405954-4 (Version None)
Quarter: 2012Q2

REPORT INFORMATION
  Report Type: 
  Country: None (occurrence: None)
  Receive Date: 20120529
  Receipt Date: 20011114
  Transmission Date: 20120825
  Serious: Yes (Other)
  Sender: FDA-Public Use
  Company Number: 02100-JPN-01-0047

PATIENT
  Age: 71 Year
  Sex: Male

DRUGS (5)
  1. PLETAL [Suspect]
     Dosage: 100 MG, BID, ORAL
     Route: 048
     Dates: start: 20000923, end: 20010421
  2. FRANDOL (ISOSORBIDE DINITRATE) TAPE (INCLUDING POULTICE), 40 MG ONGOIN [Concomitant]
  3. NORVASC (AMLODIPINE BESILATE) TABLET, 5 MG ONGOING [Concomitant]
  4. HERBESSER (DILTIAZEM HYDROCHLORIDE) TABLET, 100 MG 09/23/2000 TO 04/21 [Concomitant]
  5. METHYCOBAL (MECOBALAMIN) TABLET, .5 MG ONGOING [Concomitant]

REACTIONS (4)
  - SWELLING [None]
  - PRURITUS [None]
  - PYREXIA [None]
  - LYMPHOMA [None]
